FAERS Safety Report 7767869-4 (Version None)
Quarter: 2011Q3

REPORT INFORMATION
  Report Type: 
  Country: None (occurrence: None)
  Receive Date: 20110922
  Receipt Date: 20100317
  Transmission Date: 20111222
  Serious: Yes (Life-Threatening)
  Sender: FDA-Public Use
  Company Number: US-ASTRAZENECA-2010SE11906

PATIENT
  Sex: Female

DRUGS (2)
  1. TOPAMAX [Concomitant]
     Dosage: 30 PILLS LEFT, ALMOST FULL
  2. SEROQUEL [Suspect]
     Dosage: EMPTY BOTTLE OF SEROQUEL 200MG HAD ADMINISTRATION INSTRUCTIONS TO TAKE 1/2 TABLET ONCE/DAY
     Route: 048

REACTIONS (2)
  - SEDATION [None]
  - OVERDOSE [None]
